FAERS Safety Report 6140968-9 (Version None)
Quarter: 2009Q1

REPORT INFORMATION
  Report Type: 
  Country: None (occurrence: None)
  Receive Date: 20090331
  Receipt Date: 20090319
  Transmission Date: 20090719
  Serious: Yes (Hospitalization)
  Sender: FDA-Public Use
  Company Number: CIP09000685

PATIENT
  Age: 57 Year
  Sex: Female

DRUGS (1)
  1. ACTONEL [Suspect]
     Dosage: 1 DF CYCLIC DAILY, ORAL
     Route: 048
     Dates: start: 20090219, end: 20090220

REACTIONS (2)
  - HAEMATOCHEZIA [None]
  - MUSCLE SPASMS [None]
